FAERS Safety Report 7917911-2 (Version None)
Quarter: 2011Q4

REPORT INFORMATION
  Report Type: 
  Country: None (occurrence: None)
  Receive Date: 20111114
  Receipt Date: 20111031
  Transmission Date: 20120403
  Serious: Yes (Disabling, Congenital Anomaly)
  Sender: FDA-Public Use
  Company Number: 1000021972

PATIENT
  Sex: Male
  Weight: 3.296 kg

DRUGS (4)
  1. CITALOPRAM HYDROBROMIDE [Suspect]
     Indication: DEPRESSION
     Dosage: TRANSPLACENTAL
     Route: 064
     Dates: start: 20050101
  2. ESCITALOPRAM OXALATE [Suspect]
     Indication: DEPRESSION
     Dosage: SEE IMAGE
     Route: 064
     Dates: start: 20041117, end: 20050106
  3. ESCITALOPRAM OXALATE [Suspect]
     Indication: DEPRESSION
     Dosage: SEE IMAGE
     Route: 064
     Dates: start: 20050107, end: 20050427
  4. ESCITALOPRAM OXALATE [Suspect]
     Indication: DEPRESSION
     Dosage: SEE IMAGE
     Route: 064
     Dates: start: 20050428

REACTIONS (5)
  - ATTENTION DEFICIT/HYPERACTIVITY DISORDER [None]
  - SPEECH DISORDER DEVELOPMENTAL [None]
  - DISTURBANCE IN SOCIAL BEHAVIOUR [None]
  - DEVELOPMENTAL DELAY [None]
  - MATERNAL DRUGS AFFECTING FOETUS [None]
